FAERS Safety Report 11401562 (Version 33)
Quarter: 2019Q4

REPORT INFORMATION
  Report Type: Report from Study
  Country: CA (occurrence: CA)
  Receive Date: 20150821
  Receipt Date: 20191205
  Transmission Date: 20200122
  Serious: Yes (Hospitalization, Other)
  Sender: FDA-Public Use
  Company Number: CA-ROCHE-1618682

PATIENT
  Age: 53 Year
  Sex: Female
  Weight: 84 kg

DRUGS (9)
  1. PREDNISONE. [Concomitant]
     Active Substance: PREDNISONE
     Indication: RHEUMATOID ARTHRITIS
  2. ARAVA [Suspect]
     Active Substance: LEFLUNOMIDE
     Indication: RHEUMATOID ARTHRITIS
     Route: 065
     Dates: start: 201206, end: 20161209
  3. HUMIRA [Suspect]
     Active Substance: ADALIMUMAB
     Indication: PRODUCT USED FOR UNKNOWN INDICATION
     Route: 065
     Dates: end: 20191115
  4. ACTEMRA [Suspect]
     Active Substance: TOCILIZUMAB
     Route: 042
     Dates: start: 20160114
  5. ACTEMRA [Suspect]
     Active Substance: TOCILIZUMAB
     Route: 042
     Dates: start: 20161013, end: 20180312
  6. FOLIC ACID. [Concomitant]
     Active Substance: FOLIC ACID
  7. APO-HYDRO [Concomitant]
     Active Substance: HYDROCHLOROTHIAZIDE
  8. ACTEMRA [Suspect]
     Active Substance: TOCILIZUMAB
     Indication: RHEUMATOID ARTHRITIS
     Route: 042
     Dates: start: 20150521
  9. METHOTREXATE. [Concomitant]
     Active Substance: METHOTREXATE

REACTIONS (28)
  - Gastrointestinal inflammation [Unknown]
  - Pain [Not Recovered/Not Resolved]
  - Arthralgia [Not Recovered/Not Resolved]
  - Diarrhoea [Unknown]
  - Parasite stool test positive [Not Recovered/Not Resolved]
  - Bursitis [Unknown]
  - Nasopharyngitis [Recovered/Resolved]
  - Weight increased [Not Recovered/Not Resolved]
  - Diarrhoea [Not Recovered/Not Resolved]
  - Musculoskeletal discomfort [Not Recovered/Not Resolved]
  - Oxygen saturation decreased [Unknown]
  - Blood pressure increased [Unknown]
  - Heart rate decreased [Unknown]
  - Weight decreased [Unknown]
  - Drug ineffective [Unknown]
  - Peripheral swelling [Recovered/Resolved]
  - Enteritis infectious [Recovered/Resolved]
  - Viral test positive [Not Recovered/Not Resolved]
  - Bronchitis [Not Recovered/Not Resolved]
  - Feeling hot [Recovered/Resolved]
  - Blood pressure systolic increased [Unknown]
  - Blood pressure fluctuation [Unknown]
  - Ovarian cyst [Not Recovered/Not Resolved]
  - Dyspnoea [Not Recovered/Not Resolved]
  - Joint lock [Not Recovered/Not Resolved]
  - Hypotension [Unknown]
  - Bursitis [Not Recovered/Not Resolved]
  - White blood cell count decreased [Unknown]

NARRATIVE: CASE EVENT DATE: 201507
